FAERS Safety Report 17951084 (Version 4)
Quarter: 2020Q4

REPORT INFORMATION
  Report Type: Report from Study
  Country: US (occurrence: US)
  Receive Date: 20200626
  Receipt Date: 20201201
  Transmission Date: 20210113
  Serious: No
  Sender: FDA-Public Use
  Company Number: NVSC2020US180755

PATIENT
  Sex: Female

DRUGS (1)
  1. COSENTYX [Suspect]
     Active Substance: SECUKINUMAB
     Indication: PSORIASIS
     Dosage: UNK UNK, UNKNOWN
     Route: 065
     Dates: start: 20200522

REACTIONS (6)
  - Product administration error [Unknown]
  - Nausea [Unknown]
  - Product dose omission issue [Unknown]
  - Psoriasis [Unknown]
  - Product supply issue [Unknown]
  - Drug ineffective [Unknown]
